FAERS Safety Report 5746769-5 (Version None)
Quarter: 2008Q2

REPORT INFORMATION
  Report Type: 
  Country: None (occurrence: None)
  Receive Date: 20080522
  Receipt Date: 20080515
  Transmission Date: 20081010
  Serious: Yes (Hospitalization, Other)
  Sender: FDA-Public Use
  Company Number: SG-PFIZER INC-2008028808

PATIENT
  Age: 76 Year
  Sex: Male

DRUGS (6)
  1. SILDENAFIL CITRATE [Suspect]
     Route: 048
  2. ATENOLOL [Concomitant]
     Indication: HYPERTENSION
     Dosage: DAILY DOSE:50MG
  3. DILTIAZEM [Concomitant]
     Indication: HYPERTENSION
     Dosage: DAILY DOSE:90MG
  4. SIMVASTATIN [Concomitant]
     Indication: HYPERLIPIDAEMIA
     Dosage: DAILY DOSE:10MG
  5. ALCOHOL [Concomitant]
     Dosage: DAILY DOSE:500ML-FREQ:DAILY
  6. ANTIHYPERTENSIVES [Concomitant]

REACTIONS (6)
  - BLINDNESS [None]
  - CATARACT [None]
  - OPTIC DISC DISORDER [None]
  - OPTIC ISCHAEMIC NEUROPATHY [None]
  - SUDDEN VISUAL LOSS [None]
  - VISION BLURRED [None]
